FAERS Safety Report 23353820 (Version 2)
Quarter: 2024Q2

REPORT INFORMATION
  Report Type: Spontaneous
  Country: US (occurrence: US)
  Receive Date: 20240101
  Receipt Date: 20240514
  Transmission Date: 20240716
  Serious: No
  Sender: FDA-Public Use
  Company Number: US-SA-2023SA365225

PATIENT
  Age: 44 Year
  Sex: Female

DRUGS (21)
  1. DUPIXENT [Suspect]
     Active Substance: DUPILUMAB
     Indication: Dermatitis atopic
     Dosage: 1 DF, QOW
     Route: 058
     Dates: start: 20230830
  2. DUPIXENT [Suspect]
     Active Substance: DUPILUMAB
     Dosage: 300 MG, QOW
     Route: 058
     Dates: start: 20230828, end: 20240501
  3. HYDROCORTISONE [Suspect]
     Active Substance: HYDROCORTISONE
     Dosage: UNK
  4. TACROLIMUS [Suspect]
     Active Substance: TACROLIMUS
     Dosage: UNK
  5. VITAMINS [Concomitant]
     Active Substance: VITAMINS
  6. WELLBUTRIN [Concomitant]
     Active Substance: BUPROPION HYDROCHLORIDE
  7. WELLBUTRIN [Concomitant]
     Active Substance: BUPROPION HYDROCHLORIDE
  8. SINGULAIR [Concomitant]
     Active Substance: MONTELUKAST SODIUM
  9. SINGULAIR [Concomitant]
     Active Substance: MONTELUKAST SODIUM
  10. ALBUTEROL [Concomitant]
     Active Substance: ALBUTEROL
  11. FLUTICASONE [Concomitant]
     Active Substance: FLUTICASONE
  12. FLUTICASONE [Concomitant]
     Active Substance: FLUTICASONE
  13. MELATONIN [Concomitant]
     Active Substance: MELATONIN
  14. MELATONIN [Concomitant]
     Active Substance: MELATONIN
  15. IBUPROFEN [Concomitant]
     Active Substance: IBUPROFEN
  16. IBUPROFEN [Concomitant]
     Active Substance: IBUPROFEN
  17. ZYRTEC [Concomitant]
     Active Substance: CETIRIZINE HYDROCHLORIDE
  18. RINVOQ [Concomitant]
     Active Substance: UPADACITINIB
  19. RINVOQ [Concomitant]
     Active Substance: UPADACITINIB
  20. VITAMINS NOS [Concomitant]
     Active Substance: VITAMINS
  21. TRELEGY ELLIPTA [Concomitant]
     Active Substance: FLUTICASONE FUROATE\UMECLIDINIUM BROMIDE\VILANTEROL TRIFENATATE

REACTIONS (7)
  - Eczema [Unknown]
  - Inappropriate schedule of product administration [Unknown]
  - Eye swelling [Unknown]
  - Eye pruritus [Unknown]
  - Eye inflammation [Unknown]
  - Skin fissures [Unknown]
  - Dermatitis atopic [Unknown]

NARRATIVE: CASE EVENT DATE: 20231218
